FAERS Safety Report 6301912-4 (Version None)
Quarter: 2009Q3

REPORT INFORMATION
  Report Type: 
  Country: None (occurrence: None)
  Receive Date: 20090807
  Receipt Date: 20090727
  Transmission Date: 20100115
  Serious: Yes (Hospitalization)
  Sender: FDA-Public Use
  Company Number: US-JNJFOC-20090708616

PATIENT
  Sex: Male
  Weight: 32 kg

DRUGS (7)
  1. REMICADE [Suspect]
     Indication: DRUG DEPENDENCE
     Route: 042
  2. REMICADE [Suspect]
     Indication: COLITIS ULCERATIVE
     Route: 042
  3. PREDNISONE [Concomitant]
  4. BACTRIM [Concomitant]
     Dosage: 1/2 TABLET EVERY DAY
  5. PROGRAF [Concomitant]
  6. CELLCEPT [Concomitant]
  7. URSODIOL [Concomitant]

REACTIONS (1)
  - CHOLANGITIS SCLEROSING [None]
